FAERS Safety Report 9254591 (Version 2)
Quarter: 2013Q3

REPORT INFORMATION
  Report Type: Report from Study
  Country: JP (occurrence: JP)
  Receive Date: 20130425
  Receipt Date: 20130910
  Transmission Date: 20140515
  Serious: Yes (Hospitalization, Other)
  Sender: FDA-Public Use
  Company Number: JP-VERTEX PHARMACEUTICALS INC.-2013-001693

PATIENT
  Age: 57 Year
  Sex: Female

DRUGS (20)
  1. VX-950 (TELAPREVIR) [Suspect]
     Indication: CHRONIC HEPATITIS C
     Dosage: 2250 MG, QD
     Route: 048
     Dates: start: 20120919, end: 20121022
  2. VX-950 (TELAPREVIR) [Suspect]
     Dosage: 1500 MG, QD
     Route: 048
     Dates: start: 20121023, end: 20121024
  3. VX-950 (TELAPREVIR) [Suspect]
     Dosage: 1000 MG, QD
     Route: 048
     Dates: start: 20121025, end: 20121212
  4. RIBAVIRIN [Suspect]
     Indication: CHRONIC HEPATITIS C
     Dosage: 600 MG, QD
     Route: 048
     Dates: start: 20120919, end: 20121017
  5. RIBAVIRIN [Suspect]
     Dosage: 400 MG, QD
     Route: 048
     Dates: start: 20121018, end: 20121024
  6. RIBAVIRIN [Suspect]
     Dosage: 200 MG, QD
     Route: 048
     Dates: start: 20121025, end: 20121031
  7. RIBAVIRIN [Suspect]
     Dosage: 200 MG/2 DAYS
     Route: 048
     Dates: start: 20121101, end: 20121226
  8. RIBAVIRIN [Suspect]
     Dosage: 200 MG, QD
     Route: 048
     Dates: start: 20121227, end: 20130103
  9. RIBAVIRIN [Suspect]
     Dosage: 600 MG/ 2 DAYS
     Route: 048
     Dates: start: 20130104, end: 20130109
  10. RIBAVIRIN [Suspect]
     Dosage: 400 MG, QD
     Route: 048
     Dates: start: 20130110, end: 20130228
  11. PEGINTERFERON ALFA-2B [Suspect]
     Indication: CHRONIC HEPATITIS C
     Dosage: 1.5 ?G/KG, QW
     Route: 058
     Dates: start: 20120919, end: 20130110
  12. PEGINTERFERON ALFA-2B [Suspect]
     Dosage: 1.3 ?G/KG, QW
     Route: 058
     Dates: start: 20130124, end: 20130228
  13. EPADEL-S [Concomitant]
     Dosage: 2 DF, QD
     Route: 048
     Dates: start: 20120919, end: 20130228
  14. TSUMURA DAIKENCHUTO EXTRACT GRANULES FOR ETHICAL USE (DAIKENCHUTO) [Concomitant]
     Dosage: 6 DF, QD
     Route: 048
     Dates: start: 20121004
  15. INTEBAN [Concomitant]
     Dosage: 25 MG, QD
     Route: 054
     Dates: start: 20121010
  16. DEPAS [Concomitant]
     Dosage: 1.5 MG, QD
     Route: 048
     Dates: start: 20121122
  17. GASTER D [Concomitant]
     Dosage: 20 MG, QD
     Route: 048
     Dates: start: 20121122
  18. LOWGAN [Concomitant]
     Dosage: 40 MG, QD
     Route: 048
     Dates: start: 20121122
  19. LOXONIN [Concomitant]
     Dosage: 60 MG, PRN
     Route: 048
  20. LOXONIN [Concomitant]
     Dosage: 60 MG, QD
     Route: 048
     Dates: end: 20130121

REACTIONS (2)
  - Haemoglobin decreased [Recovered/Resolved]
  - Acute myocardial infarction [Recovered/Resolved]
